FAERS Safety Report 23648103 (Version 1)
Quarter: 2024Q1

REPORT INFORMATION
  Report Type: Other
  Country: PT (occurrence: PT)
  Receive Date: 20240319
  Receipt Date: 20240319
  Transmission Date: 20240410
  Serious: Yes (Death, Other)
  Sender: FDA-Public Use
  Company Number: PT-Merck Healthcare KGaA-2024013504

PATIENT
  Age: 62 Year
  Sex: Female

DRUGS (7)
  1. METFORMIN\VILDAGLIPTIN [Suspect]
     Active Substance: METFORMIN\VILDAGLIPTIN
     Indication: Type 2 diabetes mellitus
     Dosage: STRENGTH: 1000 + 50 MG
     Dates: start: 201101
  2. FUROSEMIDE [Concomitant]
     Active Substance: FUROSEMIDE
     Indication: Product used for unknown indication
  3. FLUTICASONE [Concomitant]
     Active Substance: FLUTICASONE
     Indication: Product used for unknown indication
     Dosage: 500 UG PER DOSE
  4. SALMETEROL [Concomitant]
     Active Substance: SALMETEROL
     Indication: Product used for unknown indication
     Dosage: 50 UG PER DOSE
  5. TIOTROPIUM BROMIDE [Concomitant]
     Active Substance: TIOTROPIUM BROMIDE
     Indication: Product used for unknown indication
     Dosage: 2.5 UG PER DOSE
  6. IBUPROFEN [Concomitant]
     Active Substance: IBUPROFEN
     Indication: Arthralgia
  7. ACEMETACIN [Concomitant]
     Active Substance: ACEMETACIN
     Indication: Arthralgia

REACTIONS (3)
  - Pancreatic carcinoma [Fatal]
  - Ischaemic stroke [Fatal]
  - Metastases to liver [Unknown]

NARRATIVE: CASE EVENT DATE: 20130601
